FAERS Safety Report 7939727-3 (Version None)
Quarter: 2011Q4

REPORT INFORMATION
  Report Type: 
  Country: None (occurrence: None)
  Receive Date: 20111125
  Receipt Date: 20111118
  Transmission Date: 20120403
  Serious: Yes (Other)
  Sender: FDA-Public Use
  Company Number: PHHY2011HU101344

PATIENT
  Age: 59 Year
  Sex: Female

DRUGS (5)
  1. VITAMIN D [Concomitant]
  2. EVISTA [Concomitant]
     Dates: start: 20070101
  3. ZOLEDRONOC ACID [Suspect]
     Dosage: 5 MG, UNK
     Route: 042
     Dates: start: 20100101
  4. ZOLEDRONOC ACID [Suspect]
     Indication: OSTEOPOROSIS
     Dosage: 5 MG, UNK
     Route: 042
     Dates: start: 20080101
  5. CALCIUM [Concomitant]

REACTIONS (1)
  - RETINAL VEIN THROMBOSIS [None]
